FAERS Safety Report 18936681 (Version 1)
Quarter: 2021Q1

REPORT INFORMATION
  Report Type: Spontaneous
  Country: US (occurrence: US)
  Receive Date: 20210224
  Receipt Date: 20210224
  Transmission Date: 20210420
  Serious: Yes (Hospitalization, Other)
  Sender: FDA-Public Use
  Company Number: US-VISTAPHARM, INC.-VER202102-000728

PATIENT
  Age: 85 Year
  Sex: Female

DRUGS (3)
  1. REGLAN [Suspect]
     Active Substance: METOCLOPRAMIDE HYDROCHLORIDE
     Indication: PRODUCT USED FOR UNKNOWN INDICATION
     Dosage: UNKNOWN
     Route: 065
     Dates: end: 202009
  2. ZYDUS BOSENTAN [Suspect]
     Active Substance: BOSENTAN
     Indication: PULMONARY ARTERIAL HYPERTENSION
     Dosage: 125 MG
     Route: 048
     Dates: start: 2019, end: 202009
  3. DIGOXIN. [Suspect]
     Active Substance: DIGOXIN
     Indication: PRODUCT USED FOR UNKNOWN INDICATION
     Dosage: UNKNOWN
     Route: 065
     Dates: end: 202009

REACTIONS (8)
  - Urinary tract infection [Recovered/Resolved]
  - Osteomyelitis [Recovered/Resolved]
  - Loss of consciousness [Unknown]
  - Electrocardiogram abnormal [Unknown]
  - Chills [Recovered/Resolved]
  - Pyrexia [Recovered/Resolved]
  - Vision blurred [Recovered/Resolved]
  - Abdominal discomfort [Recovered/Resolved]

NARRATIVE: CASE EVENT DATE: 2020
